FAERS Safety Report 16650675 (Version 2)
Quarter: 2019Q3

REPORT INFORMATION
  Report Type: Spontaneous
  Country: IT (occurrence: IT)
  Receive Date: 20190731
  Receipt Date: 20190809
  Transmission Date: 20191004
  Serious: Yes (Hospitalization)
  Sender: FDA-Public Use
  Company Number: IT-009507513-1907ITA015369

PATIENT
  Age: 68 Year
  Sex: Male
  Weight: 80 kg

DRUGS (1)
  1. PEMBROLIZUMAB. [Suspect]
     Active Substance: PEMBROLIZUMAB
     Indication: LUNG ADENOCARCINOMA STAGE IV
     Dosage: 200 MG, 1 INFUSION EVERY 21 DAYS
     Route: 042
     Dates: start: 20181220, end: 20190710

REACTIONS (8)
  - Pyrexia [Recovered/Resolved]
  - Memory impairment [Unknown]
  - Decreased appetite [Unknown]
  - Hypotension [Recovering/Resolving]
  - Hypophysitis [Recovering/Resolving]
  - Asthenia [Recovering/Resolving]
  - Fall [Unknown]
  - Neck pain [Unknown]

NARRATIVE: CASE EVENT DATE: 2019
